FAERS Safety Report 18380669 (Version 1)
Quarter: 2020Q4

REPORT INFORMATION
  Report Type: Spontaneous
  Country: US (occurrence: US)
  Receive Date: 20201014
  Receipt Date: 20201014
  Transmission Date: 20210114
  Serious: Yes (Death, Hospitalization, Other)
  Sender: FDA-Public Use
  Company Number: US-AMGEN-USASP2020165160

PATIENT

DRUGS (3)
  1. NEUPOGEN [Suspect]
     Active Substance: FILGRASTIM
     Indication: PERIPHERAL BLOOD STEM CELL APHERESIS
     Dosage: 6 MICROGRAM/KILOGRAM, QD (DAILY TILL APHERESIS)
     Route: 058
  2. CYCLOPHOSPHAMIDE. [Concomitant]
     Active Substance: CYCLOPHOSPHAMIDE
     Indication: NEOPLASM MALIGNANT
     Dosage: UNK UNK, CYCLICAL (CE: 4 G/M2 ON DAY 1, PC: 3 G/M2 ON DAY 2)
  3. CIPROFLOXACIN. [Concomitant]
     Active Substance: CIPROFLOXACIN
     Indication: PROPHYLAXIS
     Dosage: UNK,AFTER CHEMO (UNTIL ANC WAS 0. 5 X 10^9/L OR GREATER FOR 3 CONSECUTIVE DAYS AFTER NADIR)
     Route: 048

REACTIONS (6)
  - Unevaluable event [Unknown]
  - Bacteraemia [Unknown]
  - Infection [Fatal]
  - Pyrexia [Unknown]
  - Multiple organ dysfunction syndrome [Fatal]
  - Cardiac failure congestive [Unknown]
